FAERS Safety Report 4821210-5 (Version None)
Quarter: 2005Q4

REPORT INFORMATION
  Report Type: 
  Country: None (occurrence: None)
  Receive Date: 20051107
  Receipt Date: 20051024
  Transmission Date: 20060501
  Serious: Yes (Other)
  Sender: FDA-Public Use
  Company Number: US-JNJFOC-20051005129

PATIENT
  Age: 49 Year
  Sex: Female
  Weight: 62.14 kg

DRUGS (1)
  1. REOPRO [Suspect]
     Indication: STENT PLACEMENT
     Route: 042

REACTIONS (2)
  - MEDICATION ERROR [None]
  - OVERDOSE [None]
